FAERS Safety Report 7995660-2 (Version None)
Quarter: 2011Q4

REPORT INFORMATION
  Report Type: 
  Country: None (occurrence: None)
  Receive Date: 20111217
  Receipt Date: 20111217
  Transmission Date: 20120403
  Serious: Yes (Other)
  Sender: FDA-Public Use
  Company Number: None

PATIENT
  Sex: Female

DRUGS (1)
  1. XEOMIN [Suspect]
     Indication: DYSTONIA
     Dosage: 2 VIALS X 100 UNIT Q 3 RO 4MONTHS INTO NECK
     Dates: start: 20110901

REACTIONS (3)
  - MOVEMENT DISORDER [None]
  - DYSPHONIA [None]
  - NECK PAIN [None]
